FAERS Safety Report 13182282 (Version 1)
Quarter: 2017Q1

REPORT INFORMATION
  Report Type: Spontaneous
  Country: JP (occurrence: JP)
  Receive Date: 20170203
  Receipt Date: 20170203
  Transmission Date: 20170428
  Serious: Yes (Hospitalization)
  Sender: FDA-Public Use
  Company Number: JP-009507513-1701JPN002820J

PATIENT
  Age: 76 Year
  Sex: Male

DRUGS (1)
  1. BELSOMRA [Suspect]
     Active Substance: SUVOREXANT
     Indication: INITIAL INSOMNIA
     Dosage: 15 MG, QD
     Route: 048
     Dates: start: 20170127, end: 20170127

REACTIONS (1)
  - Stupor [Unknown]

NARRATIVE: CASE EVENT DATE: 20170128
